FAERS Safety Report 9715946 (Version 2)
Quarter: 2013Q4

REPORT INFORMATION
  Report Type: Spontaneous
  Country: MK (occurrence: MK)
  Receive Date: 20131127
  Receipt Date: 20131209
  Transmission Date: 20140711
  Serious: Yes (Other)
  Sender: FDA-Public Use
  Company Number: MK-JNJFOC-20131108603

PATIENT
  Sex: Female
  Weight: 92 kg

DRUGS (3)
  1. USTEKINUMAB [Suspect]
     Indication: PSORIASIS
     Route: 058
  2. USTEKINUMAB [Suspect]
     Indication: PSORIASIS
     Route: 058
  3. USTEKINUMAB [Suspect]
     Indication: PSORIASIS
     Dosage: WEEK 0 AND 4
     Route: 058
     Dates: start: 20101206

REACTIONS (1)
  - Pustular psoriasis [Recovered/Resolved]
